FAERS Safety Report 5527490-5 (Version None)
Quarter: 2007Q4

REPORT INFORMATION
  Report Type: 
  Country: None (occurrence: None)
  Receive Date: 20071128
  Receipt Date: 20071120
  Transmission Date: 20080405
  Serious: Yes (Hospitalization)
  Sender: FDA-Public Use
  Company Number: JP-WYE-H01355907

PATIENT
  Sex: Female

DRUGS (1)
  1. HYPEN [Suspect]
     Dosage: UNKNOWN
     Route: 048

REACTIONS (2)
  - CARDIAC VALVE DISEASE [None]
  - PERICARDIAL EFFUSION [None]
